FAERS Safety Report 15661365 (Version 1)
Quarter: 2018Q4

REPORT INFORMATION
  Report Type: Spontaneous
  Country: GB (occurrence: GB)
  Receive Date: 20181127
  Receipt Date: 20181127
  Transmission Date: 20190205
  Serious: Yes (Hospitalization)
  Sender: FDA-Public Use
  Company Number: PHHY2018GB166503

PATIENT
  Age: 19 Year
  Sex: Male

DRUGS (1)
  1. CODEINE PHOSPHATE [Suspect]
     Active Substance: CODEINE PHOSPHATE
     Indication: ANALGESIC THERAPY
     Dosage: 30-60MG FOUR TIMES A DAY WHEN REQUIRED
     Route: 048
     Dates: start: 20180905, end: 20181031

REACTIONS (1)
  - Pancreatitis [Recovering/Resolving]
